FAERS Safety Report 12870215 (Version 1)
Quarter: 2016Q4

REPORT INFORMATION
  Report Type: Spontaneous
  Country: BR (occurrence: BR)
  Receive Date: 20161021
  Receipt Date: 20161021
  Transmission Date: 20170207
  Serious: Yes (Other)
  Sender: FDA-Public Use
  Company Number: BR-PFIZER INC-2016489186

PATIENT
  Sex: Female

DRUGS (1)
  1. CHAMPIX [Suspect]
     Active Substance: VARENICLINE TARTRATE
     Dosage: UNK
     Dates: start: 201608, end: 201609

REACTIONS (7)
  - Cold sweat [Unknown]
  - Renal colic [Unknown]
  - Abdominal pain upper [Unknown]
  - Blood urine present [Unknown]
  - Nephrolithiasis [Unknown]
  - Retching [Unknown]
  - Pallor [Unknown]

NARRATIVE: CASE EVENT DATE: 2016
